FAERS Safety Report 6024439-6 (Version None)
Quarter: 2008Q4

REPORT INFORMATION
  Report Type: 
  Country: None (occurrence: None)
  Receive Date: 20081231
  Receipt Date: 20081222
  Transmission Date: 20090506
  Serious: Yes (Other)
  Sender: FDA-Public Use
  Company Number: PHHY2008SE32824

PATIENT
  Age: 73 Year
  Sex: Female
  Weight: 52 kg

DRUGS (1)
  1. FEMARA [Suspect]
     Dosage: 2.5 MG/DAY

REACTIONS (3)
  - FATIGUE [None]
  - MUSCULOSKELETAL PAIN [None]
  - MUSCULOSKELETAL STIFFNESS [None]
